FAERS Safety Report 6011070-1 (Version None)
Quarter: 2008Q4

REPORT INFORMATION
  Report Type: 
  Country: None (occurrence: None)
  Receive Date: 20081218
  Receipt Date: 20081210
  Transmission Date: 20090506
  Serious: Yes (Other)
  Sender: FDA-Public Use
  Company Number: JP-BAYER-200811190BYL

PATIENT
  Sex: Male
  Weight: 35 kg

DRUGS (2)
  1. BETAFERON [Suspect]
     Indication: MULTIPLE SCLEROSIS
     Dosage: UNIT DOSE: 9.6 MIU
     Route: 058
     Dates: start: 20011107
  2. BETAFERON [Suspect]
     Route: 058

REACTIONS (2)
  - MESANGIOPROLIFERATIVE GLOMERULONEPHRITIS [None]
  - PROTEINURIA [None]
